FAERS Safety Report 18010231 (Version 7)
Quarter: 2022Q2

REPORT INFORMATION
  Report Type: Report from Study
  Country: IT (occurrence: IT)
  Receive Date: 20200710
  Receipt Date: 20211116
  Transmission Date: 20220721
  Serious: Yes (Other)
  Sender: FDA-Public Use
  Company Number: IT-002147023-PHHY2018IT016649

PATIENT

DRUGS (4)
  1. RUXOLITINIB [Suspect]
     Active Substance: RUXOLITINIB
     Indication: Myelofibrosis
     Dosage: 10 DOSAGE FORM, QD (10 DAILY DOSE)
     Route: 048
     Dates: start: 20170925, end: 20171109
  2. RUXOLITINIB [Suspect]
     Active Substance: RUXOLITINIB
     Dosage: 10 DOSAGE FORM, QD (10, DAILY DOSE)
     Route: 048
     Dates: start: 20171129, end: 20180903
  3. RUXOLITINIB [Suspect]
     Active Substance: RUXOLITINIB
     Dosage: 30 DOSAGE FORM, QD (30, DAILY DOSE)
     Route: 048
     Dates: start: 20180904
  4. RUXOLITINIB [Suspect]
     Active Substance: RUXOLITINIB
     Dosage: 10 UNK
     Route: 065
     Dates: start: 20220209

REACTIONS (16)
  - Anaemia [Unknown]
  - Tooth abscess [Unknown]
  - Ecchymosis [Unknown]
  - Ecchymosis [Recovered/Resolved]
  - Epistaxis [Unknown]
  - Haematoma [Recovered/Resolved]
  - Hepatic enzyme increased [Unknown]
  - Hepatic steatosis [Unknown]
  - Intervertebral disc protrusion [Unknown]
  - Hypertensive crisis [Recovered/Resolved]
  - Myalgia [Unknown]
  - Dyspepsia [Unknown]
  - Blood bilirubin increased [Unknown]
  - Tremor [Unknown]
  - Asthenia [Unknown]
  - Thrombocytopenia [Not Recovered/Not Resolved]

NARRATIVE: CASE EVENT DATE: 20171110
